FAERS Safety Report 5096458-8 (Version None)
Quarter: 2006Q3

REPORT INFORMATION
  Report Type: 
  Country: None (occurrence: None)
  Receive Date: 20060830
  Receipt Date: 20060628
  Transmission Date: 20061208
  Serious: No
  Sender: FDA-Public Use
  Company Number: DE200608000553

PATIENT
  Age: 26 Year
  Sex: Female

DRUGS (3)
  1. ZYPREXA [Suspect]
     Indication: CYCLOTHYMIC DISORDER
     Dosage: SEE IMAGE
     Route: 048
     Dates: start: 20060616, end: 20060622
  2. ZYPREXA [Suspect]
     Indication: CYCLOTHYMIC DISORDER
     Dosage: SEE IMAGE
     Route: 048
     Dates: start: 20060623
  3. DOXEPIN HCL [Concomitant]

REACTIONS (2)
  - CONDITION AGGRAVATED [None]
  - METRORRHAGIA [None]
